FAERS Safety Report 23242494 (Version 1)
Quarter: 2023Q4

REPORT INFORMATION
  Report Type: Spontaneous
  Country: DE (occurrence: DE)
  Receive Date: 20231129
  Receipt Date: 20231129
  Transmission Date: 20240109
  Serious: Yes (Other)
  Sender: FDA-Public Use
  Company Number: DE-GILEAD-2023-0651073

PATIENT
  Age: 42 Year
  Sex: Female

DRUGS (1)
  1. TRODELVY [Suspect]
     Active Substance: SACITUZUMAB GOVITECAN-HZIY
     Indication: Triple negative breast cancer
     Dosage: 10 MG/KG, DAY 1 AND DAY 8
     Route: 065
     Dates: start: 202205

REACTIONS (2)
  - Metastases to lymph nodes [Unknown]
  - Leukopenia [Unknown]

NARRATIVE: CASE EVENT DATE: 20230201
